FAERS Safety Report 11488295 (Version 1)
Quarter: 2015Q3

REPORT INFORMATION
  Report Type: Spontaneous
  Country: US (occurrence: US)
  Receive Date: 20150910
  Receipt Date: 20150910
  Transmission Date: 20151125
  Serious: Yes (Life-Threatening, Hospitalization)
  Sender: FDA-Public Use
  Company Number: US-SUN PHARMACEUTICAL INDUSTRIES LTD-2015US-102952

PATIENT
  Age: 86 Year
  Sex: Female

DRUGS (1)
  1. ALENDRONIC ACID [Suspect]
     Active Substance: ALENDRONIC ACID
     Indication: OSTEOPOROSIS
     Dosage: UNK
     Route: 048

REACTIONS (5)
  - Dehydration [Unknown]
  - Oesophageal motility disorder [Unknown]
  - Stomatitis [Unknown]
  - Hypertensive emergency [Recovered/Resolved]
  - Delirium [Unknown]
